FAERS Safety Report 12180568 (Version 3)
Quarter: 2016Q4

REPORT INFORMATION
  Report Type: Spontaneous
  Country: US (occurrence: US)
  Receive Date: 20160315
  Receipt Date: 20161018
  Transmission Date: 20170207
  Serious: No
  Sender: FDA-Public Use
  Company Number: US-GLAXOSMITHKLINE-US2016GSK035409

PATIENT
  Sex: Female

DRUGS (1)
  1. SUMATRIPTAN SOLUTION FOR INJECTION IN PRE-FILLED PEN [Suspect]
     Active Substance: SUMATRIPTAN
     Indication: MIGRAINE

REACTIONS (5)
  - Drug dose omission [Unknown]
  - Drug ineffective [Unknown]
  - Device issue [Unknown]
  - Device malfunction [Unknown]
  - Product quality issue [Unknown]
